FAERS Safety Report 7481761-4 (Version None)
Quarter: 2011Q2

REPORT INFORMATION
  Report Type: 
  Country: None (occurrence: None)
  Receive Date: 20110516
  Receipt Date: 20110509
  Transmission Date: 20111010
  Serious: Yes (Other)
  Sender: FDA-Public Use
  Company Number: B0718842A

PATIENT
  Sex: Female

DRUGS (2)
  1. ZOVIRAX [Suspect]
     Route: 042
     Dates: start: 20110506, end: 20110506
  2. VALTREX [Suspect]
     Route: 048

REACTIONS (3)
  - OCULAR HYPERAEMIA [None]
  - HALLUCINATION, VISUAL [None]
  - HYPOAESTHESIA [None]
